FAERS Safety Report 18206058 (Version 2)
Quarter: 2020Q3

REPORT INFORMATION
  Report Type: Spontaneous
  Country: JP (occurrence: JP)
  Receive Date: 20200828
  Receipt Date: 20200909
  Transmission Date: 20201103
  Serious: Yes (Life-Threatening, Hospitalization, Other)
  Sender: FDA-Public Use
  Company Number: JP-ACCORD-197760

PATIENT
  Age: 59 Year
  Sex: Male
  Weight: 76.85 kg

DRUGS (5)
  1. CISPLATIN. [Suspect]
     Active Substance: CISPLATIN
     Indication: METASTASES TO TRACHEA
     Dosage: ON DAY 1 (EVERY FOUR WEEKS)
     Route: 042
     Dates: start: 2019, end: 2019
  2. ETOPOSIDE. [Suspect]
     Active Substance: ETOPOSIDE
     Indication: METASTASES TO TRACHEA
     Dosage: ON DAY 1,2,3 (EVERY FOUR WEEKS)
     Route: 042
     Dates: start: 2019, end: 2019
  3. ETOPOSIDE. [Suspect]
     Active Substance: ETOPOSIDE
     Indication: SMALL CELL LUNG CANCER
     Dosage: ON DAY 1,2,3
     Dates: start: 2019, end: 2019
  4. FILGRASTIM/GRANULOCYTE COLONY STIMULATING/LENOGRASTIM [Concomitant]
     Active Substance: GRANULOCYTE COLONY-STIMULATING FACTOR NOS
     Dates: start: 2019
  5. CISPLATIN. [Suspect]
     Active Substance: CISPLATIN
     Indication: METASTASES TO LUNG
     Dosage: ON DAY 1
     Dates: start: 2019, end: 2019

REACTIONS (3)
  - Neutropenia [Recovered/Resolved]
  - Febrile neutropenia [Unknown]
  - Oesophagitis [Recovered/Resolved]

NARRATIVE: CASE EVENT DATE: 2019
